FAERS Safety Report 24106154 (Version 1)
Quarter: 2024Q3

REPORT INFORMATION
  Report Type: Spontaneous
  Country: US (occurrence: US)
  Receive Date: 20240717
  Receipt Date: 20240717
  Transmission Date: 20241016
  Serious: No
  Sender: SANOFI AVENTIS
  Company Number: US-SANOFI-02128737

PATIENT
  Age: 77 Year
  Sex: Male

DRUGS (2)
  1. TOUJEO MAX [Suspect]
     Active Substance: INSULIN GLARGINE
     Indication: Diabetes mellitus
     Dosage: 6 IU, QD
     Dates: start: 202401
  2. TRESIBA [Concomitant]
     Active Substance: INSULIN DEGLUDEC

REACTIONS (1)
  - Incorrect dose administered [Unknown]

NARRATIVE: CASE EVENT DATE: 20240101
